FAERS Safety Report 5625957-2 (Version None)
Quarter: 2008Q1

REPORT INFORMATION
  Report Type: 
  Country: None (occurrence: None)
  Receive Date: 20080214
  Receipt Date: 20080214
  Transmission Date: 20080703
  Serious: Yes (Other)
  Sender: FDA-Public Use
  Company Number: A0709538A

PATIENT
  Age: 52 Year
  Sex: Female

DRUGS (1)
  1. NICORETTE [Suspect]
     Indication: DRUG USE FOR UNKNOWN INDICATION
     Dosage: 2MG SEE DOSAGE TEXT
     Route: 002
     Dates: end: 20080212

REACTIONS (8)
  - CHILLS [None]
  - FEELING ABNORMAL [None]
  - HALLUCINATION [None]
  - HYPERHIDROSIS [None]
  - INTENTIONAL DRUG MISUSE [None]
  - MEMORY IMPAIRMENT [None]
  - MOOD ALTERED [None]
  - WITHDRAWAL SYNDROME [None]
